FAERS Safety Report 19999801 (Version 1)
Quarter: 2021Q4

REPORT INFORMATION
  Report Type: Other
  Country: AU (occurrence: AU)
  Receive Date: 20211027
  Receipt Date: 20211027
  Transmission Date: 20220303
  Serious: Yes (Hospitalization)
  Sender: FDA-Public Use
  Company Number: AU-APPCO PHARMA LLC-2121042

PATIENT
  Age: 62 Year
  Sex: Male

DRUGS (2)
  1. SILDENAFIL [Suspect]
     Active Substance: SILDENAFIL
     Indication: Product used for unknown indication
     Route: 065
  2. TADALAFIL [Suspect]
     Active Substance: TADALAFIL
     Route: 065

REACTIONS (2)
  - Self-medication [Unknown]
  - Hypoglycaemia [Unknown]
